FAERS Safety Report 15356157 (Version 1)
Quarter: 2018Q3

REPORT INFORMATION
  Report Type: Report from Study
  Country: US (occurrence: US)
  Receive Date: 20180906
  Receipt Date: 20180906
  Transmission Date: 20181010
  Serious: Yes (Death, Life-Threatening, Other)
  Sender: FDA-Public Use
  Company Number: US-MYLANLABS-2018M1064083

PATIENT
  Age: 51 Year
  Sex: Male

DRUGS (1)
  1. METFORMIN [Suspect]
     Active Substance: METFORMIN HYDROCHLORIDE
     Indication: PRODUCT USED FOR UNKNOWN INDICATION
     Route: 065

REACTIONS (8)
  - Toxicity to various agents [Fatal]
  - Metabolic acidosis [Unknown]
  - Acute lung injury [Unknown]
  - Rhabdomyolysis [Unknown]
  - Acute respiratory distress syndrome [Unknown]
  - Tachycardia [Unknown]
  - Anion gap abnormal [Unknown]
  - Hypotension [Unknown]
